FAERS Safety Report 7808627-1 (Version None)
Quarter: 2011Q4

REPORT INFORMATION
  Report Type: 
  Country: None (occurrence: None)
  Receive Date: 20111012
  Receipt Date: 20111006
  Transmission Date: 20120403
  Serious: Yes (Death)
  Sender: FDA-Public Use
  Company Number: US-AMGEN-USASP2011048426

PATIENT
  Sex: Male

DRUGS (2)
  1. NEUPOGEN [Suspect]
     Indication: NEUTROPENIA
     Dates: start: 20110101
  2. ANTINEOPLASTIC AGENTS [Concomitant]
     Indication: PANCREATIC CARCINOMA

REACTIONS (1)
  - DEATH [None]
